FAERS Safety Report 5817723-X (Version None)
Quarter: 2008Q3

REPORT INFORMATION
  Report Type: 
  Country: None (occurrence: None)
  Receive Date: 20080722
  Receipt Date: 20080715
  Transmission Date: 20090109
  Serious: Yes (Other)
  Sender: FDA-Public Use
  Company Number: PHHY2008JP14458

PATIENT
  Age: 58 Year
  Sex: Female

DRUGS (1)
  1. DESFERAL [Suspect]
     Indication: SERUM FERRITIN INCREASED
     Dosage: 500 MG/DAY
     Route: 030
     Dates: start: 20080703

REACTIONS (1)
  - MYODESOPSIA [None]
